FAERS Safety Report 7338868-1 (Version None)
Quarter: 2011Q1

REPORT INFORMATION
  Report Type: 
  Country: None (occurrence: None)
  Receive Date: 20110308
  Receipt Date: 20110225
  Transmission Date: 20110831
  Serious: Yes (Hospitalization)
  Sender: FDA-Public Use
  Company Number: US-ASTRAZENECA-2010SE48171

PATIENT
  Age: 47 Year
  Sex: Female

DRUGS (1)
  1. NEXIUM [Suspect]
     Route: 048

REACTIONS (15)
  - EATING DISORDER [None]
  - INSOMNIA [None]
  - CHOLELITHIASIS [None]
  - WEIGHT DECREASED [None]
  - DYSPEPSIA [None]
  - PAIN [None]
  - ABDOMINAL PAIN UPPER [None]
  - INCORRECT DOSE ADMINISTERED [None]
  - DRUG DOSE OMISSION [None]
  - CHOLECYSTECTOMY [None]
  - DYSPHAGIA [None]
  - SKIN DISCOLOURATION [None]
  - ABNORMAL SLEEP-RELATED EVENT [None]
  - DEPRESSION [None]
  - VOMITING [None]
